FAERS Safety Report 8131283-2 (Version None)
Quarter: 2012Q1

REPORT INFORMATION
  Report Type: 
  Country: None (occurrence: None)
  Receive Date: 20120213
  Receipt Date: 20120201
  Transmission Date: 20120608
  Serious: Yes (Hospitalization)
  Sender: FDA-Public Use
  Company Number: IT-JNJFOC-20120203257

PATIENT
  Sex: Male
  Weight: 40.2 kg

DRUGS (4)
  1. ANTIBIOTICS [Concomitant]
     Indication: CROHN'S DISEASE
     Route: 048
  2. MESALAMINE [Concomitant]
     Route: 054
  3. INFLIXIMAB, RECOMBINANT [Suspect]
     Indication: CROHN'S DISEASE
     Route: 042
     Dates: start: 20101104, end: 20111205
  4. PROBIOTICS [Concomitant]

REACTIONS (1)
  - CROHN'S DISEASE [None]
